FAERS Safety Report 16912103 (Version 2)
Quarter: 2019Q4

REPORT INFORMATION
  Report Type: Spontaneous
  Country: IT (occurrence: IT)
  Receive Date: 20191014
  Receipt Date: 20191028
  Transmission Date: 20200122
  Serious: Yes (Death)
  Sender: FDA-Public Use
  Company Number: IT-009507513-1910ITA006434

PATIENT
  Age: 66 Year
  Sex: Male
  Weight: 90 kg

DRUGS (5)
  1. KEYTRUDA [Suspect]
     Active Substance: PEMBROLIZUMAB
     Indication: LUNG NEOPLASM MALIGNANT
     Dosage: 200 MILLIGRAM, CYCLICAL
     Route: 042
     Dates: start: 20180508, end: 20190306
  2. SEQUACOR [Concomitant]
     Active Substance: BISOPROLOL
  3. PANTORC [Concomitant]
     Active Substance: PANTOPRAZOLE SODIUM
  4. HEPARIN SODIUM. [Concomitant]
     Active Substance: HEPARIN SODIUM
  5. PLAUNAZIDE [Concomitant]
     Active Substance: HYDROCHLOROTHIAZIDE\OLMESARTAN MEDOXOMIL

REACTIONS (4)
  - Abdominal pain [Fatal]
  - Hypovolaemic shock [Fatal]
  - Pancreatic haemorrhage [Fatal]
  - Pancreatitis acute [Fatal]

NARRATIVE: CASE EVENT DATE: 20190606
